FAERS Safety Report 4454920-2 (Version None)
Quarter: 2004Q3

REPORT INFORMATION
  Report Type: 
  Country: None (occurrence: None)
  Receive Date: 20040921
  Receipt Date: 20040915
  Transmission Date: 20050211
  Serious: Yes (Other)
  Sender: FDA-Public Use
  Company Number: F04200400256

PATIENT
  Age: 74 Year
  Sex: Female

DRUGS (4)
  1. FONDAPARINUX SODIUM [Suspect]
     Dosage: 2.5MG PER DAY
     Route: 058
     Dates: start: 20030919, end: 20030921
  2. BELOC-ZOK MITE [Concomitant]
     Dosage: 47.5MG PER DAY
     Route: 048
  3. UNAT [Concomitant]
     Dosage: 10MG PER DAY
     Route: 048
  4. APROVEL [Concomitant]
     Dosage: 300MG PER DAY
     Route: 048

REACTIONS (4)
  - DEEP VEIN THROMBOSIS [None]
  - ERYTHEMA [None]
  - FEELING HOT [None]
  - SWELLING [None]
